FAERS Safety Report 8710475 (Version 2)
Quarter: 2013Q1

REPORT INFORMATION
  Report Type: Spontaneous
  Country: JP (occurrence: JP)
  Receive Date: 20120807
  Receipt Date: 20130308
  Transmission Date: 20140127
  Serious: Yes (Hospitalization)
  Sender: FDA-Public Use
  Company Number: JP-ELI_LILLY_AND_COMPANY-JP201207008621

PATIENT
  Age: 63 Year
  Sex: Female

DRUGS (2)
  1. FORTEO [Suspect]
     Dosage: UNK
     Route: 058
  2. INSULIN [Concomitant]
     Route: 058

REACTIONS (3)
  - Fracture [Unknown]
  - Incorrect storage of drug [Recovered/Resolved]
  - Blood glucose increased [Unknown]
